FAERS Safety Report 16882166 (Version 2)
Quarter: 2019Q4

REPORT INFORMATION
  Report Type: Spontaneous
  Country: DE (occurrence: DE)
  Receive Date: 20191003
  Receipt Date: 20191106
  Transmission Date: 20200122
  Serious: Yes (Hospitalization, Other)
  Sender: FDA-Public Use
  Company Number: DE-GLAXOSMITHKLINE-DE2019177722

PATIENT
  Age: 4 Year
  Sex: Female
  Weight: 23 kg

DRUGS (5)
  1. ATROVENT [Concomitant]
     Active Substance: IPRATROPIUM BROMIDE
     Indication: BRONCHITIS
     Dosage: 20 ?G, UNK
     Route: 055
     Dates: start: 20190406, end: 20190409
  2. PERTUSSIN (THYME) [Suspect]
     Active Substance: HERBALS\THYME
     Indication: BRONCHITIS
     Dosage: 2.5 G, UNK
     Route: 048
     Dates: start: 20190330
  3. AMPICILLIN [Concomitant]
     Active Substance: AMPICILLIN
     Indication: ANTI-INFECTIVE THERAPY
     Dosage: 1 G, UNK
     Route: 042
     Dates: start: 20190406, end: 20190409
  4. CLARITHROMYCIN. [Concomitant]
     Active Substance: CLARITHROMYCIN
     Indication: ANTI-INFECTIVE THERAPY
     Dosage: 250 MG, UNK
     Route: 048
     Dates: start: 20190406, end: 20190409
  5. SALBUTAMOL [Suspect]
     Active Substance: ALBUTEROL
     Indication: BRONCHITIS
     Dosage: 5MG/ML
     Route: 055
     Dates: start: 20190330, end: 2019

REACTIONS (4)
  - Condition aggravated [Recovering/Resolving]
  - Cough [Recovering/Resolving]
  - Respiratory failure [Recovering/Resolving]
  - Pyrexia [Recovering/Resolving]

NARRATIVE: CASE EVENT DATE: 20190602
